FAERS Safety Report 9163169 (Version 1)
Quarter: 2013Q1

REPORT INFORMATION
  Report Type: Other
  Country: GB (occurrence: GB)
  Receive Date: 20130314
  Receipt Date: 20130314
  Transmission Date: 20140127
  Serious: Yes (Other)
  Sender: FDA-Public Use
  Company Number: GB-WATSON-2013-03573

PATIENT
  Age: 30 Year
  Sex: Female
  Weight: 51 kg

DRUGS (1)
  1. CITALOPRAM HYDROBROMIDE (UNKNOWN) [Suspect]
     Indication: OBSESSIVE-COMPULSIVE DISORDER
     Dosage: 40 MG, DAILY
     Route: 048

REACTIONS (2)
  - Contusion [Not Recovered/Not Resolved]
  - Pain of skin [Not Recovered/Not Resolved]
